FAERS Safety Report 4712007-5 (Version None)
Quarter: 2005Q3

REPORT INFORMATION
  Report Type: 
  Country: None (occurrence: None)
  Receive Date: 20050711
  Receipt Date: 20050711
  Transmission Date: 20060218
  Serious: Yes (Other)
  Sender: FDA-Public Use
  Company Number: None

PATIENT
  Age: 51 Year
  Sex: Female

DRUGS (2)
  1. RHINOCORT [Suspect]
     Indication: RESPIRATORY DISORDER
     Dosage: 1   QD   NASAL
     Route: 045
     Dates: start: 20050415, end: 20050421
  2. RHINOCORT [Suspect]
     Indication: RESPIRATORY DISORDER
     Dosage: 2   BID   NASAL
     Route: 045
     Dates: start: 20050422, end: 20050506

REACTIONS (4)
  - EPISTAXIS [None]
  - NASAL DRYNESS [None]
  - NASAL MUCOSAL DISORDER [None]
  - RHINORRHOEA [None]
